FAERS Safety Report 7669370-5 (Version None)
Quarter: 2011Q3

REPORT INFORMATION
  Report Type: 
  Country: None (occurrence: None)
  Receive Date: 20110808
  Receipt Date: 20110804
  Transmission Date: 20111222
  Serious: Yes (Life-Threatening, Hospitalization, Other)
  Sender: FDA-Public Use
  Company Number: TR-SANOFI-AVENTIS-2011SA018799

PATIENT
  Age: 20 Year
  Sex: Female
  Weight: 60 kg

DRUGS (4)
  1. APIDRA SOLOSTAR [Suspect]
     Route: 058
     Dates: start: 20100501, end: 20110301
  2. SOLOSTAR [Suspect]
     Route: 058
     Dates: start: 20100501, end: 20110301
  3. LANTUS [Suspect]
     Route: 058
     Dates: start: 20100501, end: 20110301
  4. SOLOSTAR [Suspect]
     Route: 058
     Dates: start: 20100501, end: 20110301

REACTIONS (6)
  - KETONURIA [None]
  - TONSILLITIS [None]
  - METABOLIC ACIDOSIS [None]
  - KETOACIDOSIS [None]
  - HYPERGLYCAEMIA [None]
  - CONFUSIONAL STATE [None]
